FAERS Safety Report 25957232 (Version 2)
Quarter: 2025Q4

REPORT INFORMATION
  Report Type: Spontaneous
  Country: JP (occurrence: JP)
  Receive Date: 20251024
  Receipt Date: 20251119
  Transmission Date: 20260117
  Serious: Yes (Other)
  Sender: PFIZER
  Company Number: JP-GENMAB-2025-03173

PATIENT
  Age: 74 Year
  Sex: Female

DRUGS (1)
  1. TIVDAK [Suspect]
     Active Substance: TISOTUMAB VEDOTIN-TFTV
     Indication: Squamous cell carcinoma of the cervix
     Dosage: 2 MILLIGRAM/KILOGRAM
     Route: 042
     Dates: start: 20250819

REACTIONS (3)
  - Sepsis [Recovered/Resolved]
  - Hyponatraemia [Unknown]
  - Eczema [Unknown]

NARRATIVE: CASE EVENT DATE: 20250825
